FAERS Safety Report 18402734 (Version 1)
Quarter: 2020Q4

REPORT INFORMATION
  Report Type: Spontaneous
  Country: NL (occurrence: NL)
  Receive Date: 20201020
  Receipt Date: 20201020
  Transmission Date: 20210114
  Serious: Yes (Life-Threatening, Hospitalization, Other)
  Sender: FDA-Public Use
  Company Number: NL-AUROBINDO-AUR-APL-2019-080292

PATIENT
  Age: 57 Year
  Sex: Male

DRUGS (2)
  1. VALPROATE SODIUM. [Suspect]
     Active Substance: VALPROATE SODIUM
     Indication: EPILEPSY
     Dosage: 1500 MILLIGRAM, 3 TIMES A DAY
     Route: 065
  2. CARBAMAZAPINE [Suspect]
     Active Substance: CARBAMAZEPINE
     Indication: EPILEPSY
     Dosage: 400 MILLIGRAM, TWO TIMES A DAY
     Route: 065

REACTIONS (5)
  - Hyperammonaemic encephalopathy [Recovered/Resolved]
  - Loss of consciousness [Recovered/Resolved]
  - Gamma-glutamyltransferase increased [Recovered/Resolved]
  - Apnoea [Recovered/Resolved]
  - Toxicity to various agents [Recovered/Resolved]
